FAERS Safety Report 6889196-X (Version None)
Quarter: 2010Q3

REPORT INFORMATION
  Report Type: 
  Country: None (occurrence: None)
  Receive Date: 20100730
  Receipt Date: 20080110
  Transmission Date: 20110219
  Serious: No
  Sender: FDA-Public Use
  Company Number: US-PFIZER INC-2007090222

PATIENT
  Sex: Female
  Weight: 79.83 kg

DRUGS (5)
  1. LOMOTIL [Suspect]
     Indication: DIARRHOEA
     Route: 048
     Dates: start: 20030101
  2. LOMOTIL [Suspect]
  3. LOMOTIL [Suspect]
     Indication: IRRITABLE BOWEL SYNDROME
  4. DIAZIDE [Concomitant]
  5. ANTIBIOTICS [Concomitant]

REACTIONS (1)
  - ERYTHEMA [None]
